FAERS Safety Report 25675893 (Version 1)
Quarter: 2025Q3

REPORT INFORMATION
  Report Type: Spontaneous
  Country: EU (occurrence: EU)
  Receive Date: 20250813
  Receipt Date: 20250813
  Transmission Date: 20251020
  Serious: Yes (Death, Life-Threatening, Hospitalization, Other)
  Sender: PFIZER
  Company Number: EU-Pharmaand-2025000937

PATIENT
  Age: 40 Year
  Sex: Male

DRUGS (12)
  1. MEROPENEM [Suspect]
     Active Substance: MEROPENEM
  2. PIPERACILLIN SODIUM\TAZOBACTAM SODIUM [Suspect]
     Active Substance: PIPERACILLIN SODIUM\TAZOBACTAM SODIUM
  3. FILGRASTIM [Suspect]
     Active Substance: FILGRASTIM
  4. VANCOMYCIN [Suspect]
     Active Substance: VANCOMYCIN
  5. PEGINTERFERON ALFA-2A [Suspect]
     Active Substance: PEGINTERFERON ALFA-2A
  6. CALCIUM CARBONATE [Suspect]
     Active Substance: CALCIUM CARBONATE
  7. ALLOPURINOL [Suspect]
     Active Substance: ALLOPURINOL
  8. BEXAROTENE [Suspect]
     Active Substance: BEXAROTENE
  9. RASBURICASE [Suspect]
     Active Substance: RASBURICASE
  10. FUROSEMIDE [Suspect]
     Active Substance: FUROSEMIDE
  11. MORPHINE [Suspect]
     Active Substance: MORPHINE
  12. TRAMADOL [Suspect]
     Active Substance: TRAMADOL

REACTIONS (3)
  - Multiple organ dysfunction syndrome [Fatal]
  - Cutaneous T-cell lymphoma stage I [Fatal]
  - Malignant neoplasm progression [Fatal]
